FAERS Safety Report 6609740-7 (Version None)
Quarter: 2010Q1

REPORT INFORMATION
  Report Type: 
  Country: None (occurrence: None)
  Receive Date: 20100302
  Receipt Date: 20100223
  Transmission Date: 20100710
  Serious: Yes (Life-Threatening, Other)
  Sender: FDA-Public Use
  Company Number: MX-SANOFI-AVENTIS-2010SA010730

PATIENT
  Age: 29 Year
  Sex: Male
  Weight: 105 kg

DRUGS (3)
  1. LANTUS [Suspect]
     Indication: TYPE 1 DIABETES MELLITUS
     Route: 058
     Dates: start: 20060101, end: 20100219
  2. LANTUS [Suspect]
     Route: 058
     Dates: start: 20100220
  3. HUMALOG [Concomitant]
     Indication: TYPE 1 DIABETES MELLITUS
     Route: 058

REACTIONS (5)
  - AMNESIA [None]
  - CONDITION AGGRAVATED [None]
  - HEPATITIS B [None]
  - HYPOGLYCAEMIA [None]
  - HYPOGLYCAEMIC SEIZURE [None]
